FAERS Safety Report 7523497-7 (Version None)
Quarter: 2011Q2

REPORT INFORMATION
  Report Type: 
  Country: None (occurrence: None)
  Receive Date: 20110603
  Receipt Date: 20091114
  Transmission Date: 20111010
  Serious: Yes (Other)
  Sender: FDA-Public Use
  Company Number: US-BAYER-200939337NA

PATIENT
  Age: 63 Year
  Sex: Male
  Weight: 95 kg

DRUGS (13)
  1. NITROGLYCERIN [Concomitant]
     Dosage: 200 MCG/ML, UNK
     Route: 042
     Dates: start: 20050919
  2. TRASYLOL [Suspect]
     Indication: CORONARY ARTERY BYPASS
     Dosage: 1 ML, 200 ML
     Route: 042
     Dates: start: 20050919, end: 20050919
  3. GABAPENTIN [Concomitant]
     Dosage: 300 MG, TID
     Dates: start: 20050906, end: 20050916
  4. INSULIN [Concomitant]
     Dosage: 10 U, UNK
     Route: 058
  5. LIPITOR [Concomitant]
     Dosage: 20 MG, UNK
     Dates: start: 19990101
  6. GLIPIZIDE [Concomitant]
     Dosage: 5 MG, UNK
     Dates: start: 19980101
  7. GENTAMYCIN SULFATE [Concomitant]
     Dosage: 80 MG, UNK
     Route: 042
     Dates: start: 20050919
  8. BAYCOL [Concomitant]
     Dosage: 0.3 MG, UNK
     Dates: start: 19980101
  9. LOTENSIN [Concomitant]
     Dosage: 10 MG, UNK
     Dates: start: 19980101
  10. DICLOXACILLIN [Concomitant]
     Dosage: 250 MG, UNK
     Dates: start: 20050624, end: 20050630
  11. ROCURONIUM BROMIDE [Concomitant]
     Dosage: UNK
     Route: 042
     Dates: start: 20050919
  12. GLUCOPHAGE [Concomitant]
     Dosage: 500 MG, UNK
     Dates: start: 19980101
  13. MILRINONE [Concomitant]
     Dosage: 200 MCG/ML, UNK
     Route: 042
     Dates: start: 20050919

REACTIONS (12)
  - RENAL FAILURE [None]
  - RENAL IMPAIRMENT [None]
  - STRESS [None]
  - ANXIETY [None]
  - PAIN [None]
  - ANHEDONIA [None]
  - UNEVALUABLE EVENT [None]
  - FEAR [None]
  - EMOTIONAL DISTRESS [None]
  - NEPHROPATHY [None]
  - RENAL INJURY [None]
  - INJURY [None]
